FAERS Safety Report 17926004 (Version 1)
Quarter: 2020Q2

REPORT INFORMATION
  Report Type: Report from Study
  Country: CA (occurrence: CA)
  Receive Date: 20200622
  Receipt Date: 20200622
  Transmission Date: 20200714
  Serious: Yes (Other)
  Sender: FDA-Public Use
  Company Number: CA-JNJFOC-20200623322

PATIENT
  Age: 14 Year
  Sex: Male
  Weight: 48.5 kg

DRUGS (1)
  1. REMICADE [Suspect]
     Active Substance: INFLIXIMAB
     Indication: COLITIS ULCERATIVE
     Route: 042
     Dates: start: 20200323

REACTIONS (3)
  - Frequent bowel movements [Unknown]
  - General physical health deterioration [Unknown]
  - Haematochezia [Unknown]

NARRATIVE: CASE EVENT DATE: 20200615
